FAERS Safety Report 26074512 (Version 1)
Quarter: 2025Q4

REPORT INFORMATION
  Report Type: Spontaneous
  Country: EU (occurrence: EU)
  Receive Date: 20251121
  Receipt Date: 20251121
  Transmission Date: 20260117
  Serious: Yes (Hospitalization)
  Sender: REGENERON
  Company Number: EU-BAYER-2025A151243

PATIENT
  Sex: Male

DRUGS (11)
  1. EYLEA [Suspect]
     Active Substance: AFLIBERCEPT
     Indication: Product used for unknown indication
     Dosage: 8 MG, SOLUTION FOR INJECTION IN PRE-FILLED SYRINGE, 114. 3 MG/ML
     Dates: start: 20251103
  2. CANDESARTAN CILEXETIL [Concomitant]
     Active Substance: CANDESARTAN CILEXETIL
     Indication: Vitreous disorder
     Dosage: UNK
     Dates: start: 20251107
  3. CANDESARTAN CILEXETIL [Concomitant]
     Active Substance: CANDESARTAN CILEXETIL
     Indication: Immune system disorder
  4. AMLODIPINE BESYLATE [Concomitant]
     Active Substance: AMLODIPINE BESYLATE
     Indication: Vitreous disorder
     Dosage: UNK
     Dates: start: 20251107
  5. AMLODIPINE BESYLATE [Concomitant]
     Active Substance: AMLODIPINE BESYLATE
     Indication: Immune system disorder
  6. LEVOTHYROXINE SODIUM [Concomitant]
     Active Substance: LEVOTHYROXINE SODIUM
     Indication: Vitreous disorder
     Dosage: UNK
     Dates: start: 20251107
  7. LEVOTHYROXINE SODIUM [Concomitant]
     Active Substance: LEVOTHYROXINE SODIUM
     Indication: Immune system disorder
  8. NEM [Concomitant]
     Indication: Vitreous disorder
     Dosage: UNK
     Dates: start: 20251107
  9. NEM [Concomitant]
     Indication: Immune system disorder
  10. LUTEIN [Concomitant]
     Active Substance: LUTEIN
     Indication: Vitreous disorder
     Dosage: UNK
     Dates: start: 20251107
  11. LUTEIN [Concomitant]
     Active Substance: LUTEIN
     Indication: Immune system disorder

REACTIONS (3)
  - Vitreous opacities [Not Recovered/Not Resolved]
  - Eye irritation [Not Recovered/Not Resolved]
  - Visual impairment [Unknown]

NARRATIVE: CASE EVENT DATE: 20251107
